FAERS Safety Report 11118951 (Version 1)
Quarter: 2015Q2

REPORT INFORMATION
  Report Type: Spontaneous
  Country: US (occurrence: None)
  Receive Date: 20150515
  Receipt Date: 20150515
  Transmission Date: 20150821
  Serious: Yes (Other)
  Sender: FDA-Public Use
  Company Number: None

PATIENT
  Age: 32 Year
  Sex: Female
  Weight: 56.7 kg

DRUGS (3)
  1. SERTRALINE [Suspect]
     Active Substance: SERTRALINE HYDROCHLORIDE
     Indication: DEPRESSION
     Route: 048
     Dates: start: 20140810
  2. MULTIVITAMIN [Concomitant]
     Active Substance: VITAMINS
     Indication: DEPRESSION
  3. MULTIVITAMIN [Concomitant]
     Active Substance: VITAMINS
     Indication: ANXIETY

REACTIONS (1)
  - Night sweats [None]

NARRATIVE: CASE EVENT DATE: 20150301
